FAERS Safety Report 9999178 (Version 1)
Quarter: 2014Q1

REPORT INFORMATION
  Report Type: Spontaneous
  Country: US (occurrence: None)
  Receive Date: 20140311
  Receipt Date: 20140311
  Transmission Date: 20141002
  Serious: Yes (Disabling)
  Sender: FDA-Public Use
  Company Number: None

PATIENT
  Age: 52 Year
  Sex: Female
  Weight: 97.52 kg

DRUGS (1)
  1. FETZIMA [Suspect]
     Indication: DEPRESSION
     Dosage: TAKEN BY MOUTH
     Dates: start: 20140220, end: 20140304

REACTIONS (2)
  - Rash generalised [None]
  - Impaired work ability [None]
